FAERS Safety Report 8352377-2 (Version None)
Quarter: 2012Q2

REPORT INFORMATION
  Report Type: 
  Country: None (occurrence: None)
  Receive Date: 20120511
  Receipt Date: 20120503
  Transmission Date: 20120825
  Serious: Yes (Hospitalization, Other)
  Sender: FDA-Public Use
  Company Number: US-BAYER-2012-044776

PATIENT
  Age: 50 Year
  Sex: Female
  Weight: 69 kg

DRUGS (2)
  1. YASMIN [Suspect]
     Indication: MENSTRUATION IRREGULAR
     Dosage: UNK
     Dates: start: 20070422, end: 20080405
  2. YAZ [Suspect]
     Indication: MENSTRUATION IRREGULAR
     Dosage: UNK
     Dates: start: 20080503, end: 20091013

REACTIONS (8)
  - CHEST PAIN [None]
  - PULMONARY EMBOLISM [None]
  - PLEURISY [None]
  - MUSCULOSKELETAL CHEST PAIN [None]
  - CHEST DISCOMFORT [None]
  - ATELECTASIS [None]
  - HAEMORRHAGE [None]
  - PLEURAL EFFUSION [None]
